FAERS Safety Report 24245130 (Version 3)
Quarter: 2024Q4

REPORT INFORMATION
  Report Type: Spontaneous
  Country: US (occurrence: US)
  Receive Date: 20240823
  Receipt Date: 20241202
  Transmission Date: 20250114
  Serious: Yes (Death)
  Sender: DAIICHI
  Company Number: US-DAIICHI SANKYO, INC.-DSU-2024-138767AA

PATIENT
  Sex: Female

DRUGS (1)
  1. VANFLYTA [Suspect]
     Active Substance: QUIZARTINIB DIHYDROCHLORIDE
     Indication: Acute myeloid leukaemia
     Dosage: 17.7 MG, QD (DAYS 1- 14 OF EACH 28-DAY CYCLE)
     Route: 048
     Dates: start: 20240729

REACTIONS (3)
  - Death [Fatal]
  - Oral infection [Not Recovered/Not Resolved]
  - Tooth infection [Not Recovered/Not Resolved]
